FAERS Safety Report 17125290 (Version 2)
Quarter: 2019Q4

REPORT INFORMATION
  Report Type: Spontaneous
  Country: US (occurrence: US)
  Receive Date: 20191207
  Receipt Date: 20191217
  Transmission Date: 20200122
  Serious: Yes (Life-Threatening, Hospitalization, Disabling, Congenital Anomaly, Other)
  Sender: FDA-Public Use
  Company Number: US-AUROBINDO-AUR-APL-2019-103524

PATIENT
  Age: 35 Week
  Sex: Male
  Weight: 1.92 kg

DRUGS (3)
  1. HEROIN [Suspect]
     Active Substance: DIAMORPHINE
     Indication: PRODUCT USED FOR UNKNOWN INDICATION
     Dosage: UNK
     Route: 064
  2. BUPRENORPHINE. [Suspect]
     Active Substance: BUPRENORPHINE
     Indication: PRODUCT USED FOR UNKNOWN INDICATION
     Dosage: UNK
     Route: 064
  3. GABAPENTIN. [Suspect]
     Active Substance: GABAPENTIN
     Indication: PRODUCT USED FOR UNKNOWN INDICATION
     Dosage: UNK
     Route: 064

REACTIONS (23)
  - Sepsis [Recovering/Resolving]
  - Foetal exposure during pregnancy [Unknown]
  - Drug withdrawal syndrome neonatal [Recovering/Resolving]
  - High-pitched crying [Unknown]
  - Drug interaction [Unknown]
  - Feeding intolerance [Recovering/Resolving]
  - Ear deformity acquired [Unknown]
  - Blindness [Unknown]
  - Cerebral disorder [Unknown]
  - Micrognathia [Unknown]
  - Eyelid ptosis [Unknown]
  - Cerebral ventricle dilatation [Unknown]
  - Vomiting [Recovering/Resolving]
  - Hypoxic-ischaemic encephalopathy [Recovering/Resolving]
  - Joint hyperextension [Unknown]
  - Gastrooesophageal reflux disease [Unknown]
  - Developmental hip dysplasia [Unknown]
  - Deafness bilateral [Unknown]
  - Neonatal respiratory distress syndrome [Recovering/Resolving]
  - Hydronephrosis [Recovering/Resolving]
  - Palatal disorder [Unknown]
  - Anorectal disorder [Unknown]
  - Congenital multiplex arthrogryposis [Unknown]
